FAERS Safety Report 8191821-0 (Version None)
Quarter: 2012Q1

REPORT INFORMATION
  Report Type: 
  Country: None (occurrence: None)
  Receive Date: 20120307
  Receipt Date: 20120302
  Transmission Date: 20120608
  Serious: Yes (Other)
  Sender: FDA-Public Use
  Company Number: US-PFIZER INC-2012057930

PATIENT
  Sex: Female

DRUGS (16)
  1. TRAZODONE [Concomitant]
     Dosage: 50 MG, 1X/DAY
  2. LUNESTA [Concomitant]
     Dosage: 2 MG, AS NEEDED
  3. PREDNISONE [Concomitant]
     Dosage: 20 MG, AS NEEDED
  4. CITALOPRAM [Concomitant]
     Dosage: 20 MG, 1X/DAY
  5. METFORMIN [Concomitant]
     Dosage: 500 MG, 3X/DAY
  6. FEXOFENADINE [Concomitant]
     Dosage: 180 MG, 1X/DAY
  7. PREDNISOLONE ACETATE [Concomitant]
     Dosage: 1 %, 3X/DAY
  8. CYCLOSPORINE [Concomitant]
     Dosage: 0.05 %, 4X/DAY
  9. NEURONTIN [Suspect]
     Dosage: 300 MG, 2X/DAY (1 QAM HS)
  10. NITROFURANTOIN MONOHYDRATE [Concomitant]
     Indication: URINARY TRACT INFECTION
     Dosage: 100 MG, UNK
  11. GEODON [Suspect]
     Dosage: 80 MG, 1X/DAY (1 QAM)
  12. NOVOLOG [Concomitant]
     Dosage: 45 UNITS BEFORE MEALS
  13. LANTUS [Concomitant]
     Dosage: 92 UNITS AT BEDTIME
  14. SIMVASTATIN [Concomitant]
     Dosage: 400 MG, 1X/DAY
  15. ACYCLOVIR [Concomitant]
     Dosage: 400 MG, 2X/DAY
  16. ANASTROZOLE [Concomitant]
     Dosage: 1 MG, 1X/DAY

REACTIONS (2)
  - DIABETES MELLITUS [None]
  - CORNEAL TRANSPLANT [None]
